FAERS Safety Report 11627165 (Version 1)
Quarter: 2015Q4

REPORT INFORMATION
  Report Type: Report from Study
  Country: US (occurrence: US)
  Receive Date: 20151013
  Receipt Date: 20151013
  Transmission Date: 20160304
  Serious: No
  Sender: FDA-Public Use
  Company Number: US-AMGEN-USASL2015010349

PATIENT
  Age: 51 Year
  Sex: Female

DRUGS (7)
  1. DARVOCET-N 100 [Concomitant]
     Active Substance: ACETAMINOPHEN\PROPOXYPHENE NAPSYLATE
     Dosage: 100 MG, 2 IN 1 D
     Route: 048
  2. NEUPOGEN [Suspect]
     Active Substance: FILGRASTIM
     Indication: PRODUCT USED FOR UNKNOWN INDICATION
     Dosage: 300 MUG, UNK
     Route: 065
     Dates: start: 19970203
  3. TAXOL [Concomitant]
     Active Substance: PACLITAXEL
     Dosage: UNK
     Dates: start: 19980606
  4. HERCEPTIN [Suspect]
     Active Substance: TRASTUZUMAB
     Indication: BREAST CANCER
     Dosage: UNK
     Route: 042
     Dates: start: 199811
  5. TAMOXIFEN [Suspect]
     Active Substance: TAMOXIFEN
     Indication: PRODUCT USED FOR UNKNOWN INDICATION
     Dosage: 20 MG, 4 IN 1 D
     Route: 065
     Dates: start: 19980606
  6. TOPOTECAN [Concomitant]
     Active Substance: TOPOTECAN\TOPOTECAN HYDROCHLORIDE
     Dosage: UNK
     Dates: start: 199802
  7. HERCEPTIN [Suspect]
     Active Substance: TRASTUZUMAB
     Indication: METASTASES TO OVARY
     Dosage: UNK
     Route: 042
     Dates: start: 19990505

REACTIONS (2)
  - Erythema [Unknown]
  - Condition aggravated [Unknown]
